FAERS Safety Report 13844809 (Version 1)
Quarter: 2017Q3

REPORT INFORMATION
  Report Type: Spontaneous
  Country: FR (occurrence: FR)
  Receive Date: 20170808
  Receipt Date: 20170808
  Transmission Date: 20171127
  Serious: Yes (Other)
  Sender: FDA-Public Use
  Company Number: FR-SA-2017SA136461

PATIENT
  Sex: Female
  Weight: 50 kg

DRUGS (1)
  1. DULCOLAX NOS [Suspect]
     Active Substance: BISACODYL OR DOCUSATE SODIUM
     Indication: WEIGHT DECREASED
     Route: 065
     Dates: start: 20161028, end: 20161028

REACTIONS (1)
  - Drug abuse [Unknown]
